FAERS Safety Report 8200576-2 (Version None)
Quarter: 2012Q1

REPORT INFORMATION
  Report Type: 
  Country: None (occurrence: None)
  Receive Date: 20120305
  Receipt Date: 20120222
  Transmission Date: 20120608
  Serious: No
  Sender: FDA-Public Use
  Company Number: US-145263

PATIENT
  Sex: Female
  Weight: 17.4 kg

DRUGS (2)
  1. IMMUNE GLOBULIN NOS [Concomitant]
  2. WINRHO SDF [Suspect]
     Indication: IDIOPATHIC THROMBOCYTOPENIC PURPURA
     Dosage: (850 UG 1X INTRAVENOUS (NOT OTHERWISE SPECIFIED)
     Route: 042
     Dates: start: 20110323, end: 20110323

REACTIONS (3)
  - HAEMOLYSIS [None]
  - HAEMOGLOBIN DECREASED [None]
  - COOMBS TEST POSITIVE [None]
